FAERS Safety Report 9354060 (Version 1)
Quarter: 2013Q2

REPORT INFORMATION
  Report Type: Spontaneous
  Country: US (occurrence: None)
  Receive Date: 20130613
  Receipt Date: 20130613
  Transmission Date: 20140414
  Serious: Yes (Other)
  Sender: FDA-Public Use
  Company Number: AUR-APL-2013-02388

PATIENT
  Age: 85 Year
  Sex: Female
  Weight: 125 kg

DRUGS (5)
  1. SIMVASTATIN (SIMVASTATIN) [Suspect]
     Indication: BLOOD CHOLESTEROL
     Dosage: (5 MG 1 IN 1 D)
     Dates: start: 20121127
  2. LISINOPRIL [Concomitant]
  3. EFFEXOR [Concomitant]
  4. GABAPENTIN [Concomitant]
  5. DONEPEZIL [Concomitant]

REACTIONS (4)
  - Fatigue [None]
  - Anxiety [None]
  - Wrong drug administered [None]
  - Sudden onset of sleep [None]
